FAERS Safety Report 19714349 (Version 1)
Quarter: 2021Q3

REPORT INFORMATION
  Report Type: Other
  Country: IT (occurrence: IT)
  Receive Date: 20210818
  Receipt Date: 20210818
  Transmission Date: 20211014
  Serious: Yes (Other)
  Sender: FDA-Public Use
  Company Number: IT-CELLTRION INC.-2021IT010445

PATIENT

DRUGS (1)
  1. TRUXIMA [Suspect]
     Active Substance: RITUXIMAB-ABBS
     Indication: SYSTEMIC SCLERODERMA
     Dosage: 1 DF, TOTAL
     Route: 042
     Dates: start: 20190923, end: 20190923

REACTIONS (6)
  - Paraesthesia [Recovering/Resolving]
  - Oropharyngeal pain [Recovering/Resolving]
  - Spinal pain [Recovering/Resolving]
  - Off label use [Unknown]
  - Presyncope [Recovering/Resolving]
  - Joint lock [Recovering/Resolving]

NARRATIVE: CASE EVENT DATE: 20190923
